FAERS Safety Report 18329612 (Version 1)
Quarter: 2020Q3

REPORT INFORMATION
  Report Type: Spontaneous
  Country: DE (occurrence: DE)
  Receive Date: 20200930
  Receipt Date: 20200930
  Transmission Date: 20201103
  Serious: Yes (Hospitalization)
  Sender: FDA-Public Use
  Company Number: DE-MICRO LABS LIMITED-ML2020-02915

PATIENT
  Age: 62 Year
  Sex: Male

DRUGS (19)
  1. SPIRONOLACTON [Suspect]
     Active Substance: SPIRONOLACTONE
     Dosage: 50 MG, 0.5?0?0?0, TABLETS
  2. IBUPROFEN. [Suspect]
     Active Substance: IBUPROFEN
     Dosage: 600 MG, 1?0?0?0
  3. SALBUTAMOL [Concomitant]
     Active Substance: ALBUTEROL
     Dosage: 0.1 MG, REQUIREMENT, METERED DOSE INHALER
  4. INDAPAMID/PERINDOPRIL [Suspect]
     Active Substance: INDAPAMIDE\PERINDOPRIL
     Dosage: 1.25/5 MG, 1?0?0?0, TABLETS
  5. GLYCEROLTRINITRAT [Concomitant]
     Active Substance: NITROGLYCERIN
     Dosage: 0.4 MG, REQUIREMENT, TABLET
  6. FORMOTEROL [Concomitant]
     Active Substance: FORMOTEROL
     Dosage: 12 UG, 1?0?0?0, CAPSULES FOR INHALATION
  7. ATORVASTATIN [Suspect]
     Active Substance: ATORVASTATIN
     Dosage: 40 MG, 0?0?1?0, TABLETS
  8. EZETIMIBE. [Suspect]
     Active Substance: EZETIMIBE
     Dosage: 10 MG, 1?0?0?0, TABLETS
  9. OMEPRAZOL [Concomitant]
     Active Substance: OMEPRAZOLE
     Dosage: 40 MG, 0?0?1?0, CAPSULES
  10. LERCANIDIPINE [Suspect]
     Active Substance: LERCANIDIPINE
     Dosage: 20 MG, 0.5?0?0.5?0, TABLETS
  11. ACTRAPID [Concomitant]
     Active Substance: INSULIN HUMAN
     Dosage: ACCORDING TO PLAN, SOLUTION FOR INJECTION / INFUSION
     Route: 058
  12. COLECALCIFEROL (VITAMIN D) [Concomitant]
     Dosage: 24/5000 1000 IU, 0?1?0?0, CAPSULES
  13. VERAPAMIL [Concomitant]
     Active Substance: VERAPAMIL HYDROCHLORIDE
     Dosage: 120 MG, 1?0?1?0, TABLETS
  14. PREGABALIN. [Concomitant]
     Active Substance: PREGABALIN
     Dosage: 75 MG, 1?0?1?0, CAPSULES
  15. INSULIN GLARGIN [Concomitant]
     Active Substance: INSULIN GLARGINE
     Dosage: ACCORDING TO PLAN, SOLUTION FOR INJECTION / INFUSION
     Route: 058
  16. TAMSULOSIN [Concomitant]
     Active Substance: TAMSULOSIN
     Dosage: 0.4 MG, 1?0?0?0, SUSTAINED?RELEASE CAPSULES
  17. TORASEMID [Suspect]
     Active Substance: TORSEMIDE
     Dosage: 20 MG, 2?2?0?0, TABLETS
  18. ASS 100 [Concomitant]
     Active Substance: ASPIRIN
     Dosage: 100 MG, 0?1?0?0, METERED DOSE INHALER
  19. BUPROPION. [Concomitant]
     Active Substance: BUPROPION
     Dosage: 150 MG, AS NEEDED, TABLETS

REACTIONS (6)
  - Rash [Recovering/Resolving]
  - Dyspnoea exertional [Recovering/Resolving]
  - Dry skin [Recovering/Resolving]
  - Acute kidney injury [Recovering/Resolving]
  - Condition aggravated [Recovering/Resolving]
  - Oedema peripheral [Recovering/Resolving]
